FAERS Safety Report 7615604-2 (Version None)
Quarter: 2011Q3

REPORT INFORMATION
  Report Type: 
  Country: None (occurrence: None)
  Receive Date: 20110708
  Receipt Date: 20110628
  Transmission Date: 20111222
  Serious: Yes (Hospitalization)
  Sender: FDA-Public Use
  Company Number: 1000021874

PATIENT
  Sex: Female

DRUGS (2)
  1. VIIBRYD [Suspect]
     Dates: start: 20110601
  2. LEXAPRO [Suspect]
     Dates: end: 20110601

REACTIONS (2)
  - PANIC ATTACK [None]
  - DYSPNOEA [None]
